FAERS Safety Report 6662489-7 (Version None)
Quarter: 2010Q1

REPORT INFORMATION
  Report Type: 
  Country: None (occurrence: None)
  Receive Date: 20100329
  Receipt Date: 20100313
  Transmission Date: 20100710
  Serious: Yes (Hospitalization, Other)
  Sender: FDA-Public Use
  Company Number: RB-18864-2009

PATIENT
  Age: 37 Year
  Sex: Male

DRUGS (2)
  1. SUBOXONE [Suspect]
     Indication: DRUG DEPENDENCE
     Dosage: 16 MG QD SUBLINGUAL
     Route: 060
     Dates: start: 20080101
  2. BENZODIAZEPINE DERIVATIVES [Suspect]
     Indication: DRUG USE FOR UNKNOWN INDICATION

REACTIONS (11)
  - APATHY [None]
  - BLOOD URIC ACID INCREASED [None]
  - CHEST PAIN [None]
  - DEHYDRATION [None]
  - FATIGUE [None]
  - HEADACHE [None]
  - KIDNEY INFECTION [None]
  - MUSCLE STRAIN [None]
  - RENAL FAILURE [None]
  - RENAL FAILURE ACUTE [None]
  - TINNITUS [None]
